FAERS Safety Report 8071068-9 (Version None)
Quarter: 2012Q1

REPORT INFORMATION
  Report Type: 
  Country: None (occurrence: None)
  Receive Date: 20120125
  Receipt Date: 20120118
  Transmission Date: 20120608
  Serious: Yes (Other)
  Sender: FDA-Public Use
  Company Number: JP-PFIZER INC-2012015873

PATIENT
  Age: 76 Year
  Sex: Male

DRUGS (3)
  1. LYRICA [Suspect]
     Indication: ARTHRALGIA
     Dosage: 150 MG DAILY
     Route: 048
     Dates: start: 20110926, end: 20120110
  2. MONTELUKAST SODIUM [Concomitant]
     Route: 048
  3. PRORENAL [Concomitant]
     Route: 048

REACTIONS (1)
  - BLOOD CREATINE PHOSPHOKINASE INCREASED [None]
